FAERS Safety Report 5836629-3 (Version None)
Quarter: 2008Q3

REPORT INFORMATION
  Report Type: 
  Country: None (occurrence: None)
  Receive Date: 20080807
  Receipt Date: 20080729
  Transmission Date: 20090109
  Serious: Yes (Death, Hospitalization, Other)
  Sender: FDA-Public Use
  Company Number: US-ELI_LILLY_AND_COMPANY-US200805001537

PATIENT
  Age: 45 Year
  Sex: Male

DRUGS (15)
  1. GEMZAR [Suspect]
     Indication: PANCREATIC CARCINOMA METASTATIC
     Dosage: UNK, UNK
     Route: 042
     Dates: start: 20070830, end: 20080305
  2. TARCEVA [Concomitant]
     Indication: PANCREATIC CARCINOMA RECURRENT
     Dosage: UNK, UNK
     Dates: start: 20070901, end: 20080305
  3. AVASTIN [Concomitant]
     Indication: PANCREATIC CARCINOMA METASTATIC
     Dosage: UNK, UNK
     Dates: start: 20080101, end: 20080305
  4. NIFEDIPINE [Concomitant]
     Dosage: 30 MG, EACH MORNING
     Route: 048
     Dates: start: 20080331
  5. NIFEDIPINE [Concomitant]
     Dosage: 60 MG, EACH EVENING
     Dates: start: 20080331
  6. CARAFATE [Concomitant]
  7. SODIUM BICARBONATE [Concomitant]
     Dosage: 1300 MG, 3/D
     Route: 048
  8. SODIUM BICARBONATE [Concomitant]
     Dosage: 1300 MG, 2/D
     Route: 048
  9. LORAZEPAM [Concomitant]
     Indication: NAUSEA
     Dosage: 0.5 MG, AS NEEDED
     Route: 048
  10. ALLOPURINOL [Concomitant]
     Dosage: 100 MG, DAILY (1/D)
     Route: 048
  11. OXYCODONE HCL [Concomitant]
     Indication: PAIN
     Dosage: 5 MG, AS NEEDED
     Route: 048
  12. OXYCODONE HCL [Concomitant]
     Dosage: 10 MG, AS NEEDED
  13. ZOLPIDEM [Concomitant]
     Dosage: 7.5 MG, AS NEEDED
     Route: 048
  14. ZOLPIDEM [Concomitant]
     Dosage: 15 MG, AS NEEDED
     Route: 047
  15. PANTOPRAZOLE SODIUM [Concomitant]
     Dosage: 40 MG, EACH EVENING

REACTIONS (19)
  - ABDOMINAL PAIN LOWER [None]
  - ARTHRALGIA [None]
  - BLOOD CREATININE INCREASED [None]
  - CARDIAC FAILURE CONGESTIVE [None]
  - CHILLS [None]
  - DYSPNOEA [None]
  - FATIGUE [None]
  - FLUID RETENTION [None]
  - GASTROINTESTINAL PAIN [None]
  - HYPERTENSION [None]
  - INFLUENZA LIKE ILLNESS [None]
  - INSOMNIA [None]
  - MALIGNANT NEOPLASM PROGRESSION [None]
  - MYALGIA [None]
  - NAUSEA [None]
  - NEUROPATHY PERIPHERAL [None]
  - PYREXIA [None]
  - RED BLOOD CELL COUNT DECREASED [None]
  - RENAL FAILURE [None]
